FAERS Safety Report 10257279 (Version 4)
Quarter: 2015Q2

REPORT INFORMATION
  Report Type: Spontaneous
  Country: US (occurrence: US)
  Receive Date: 20140625
  Receipt Date: 20150519
  Transmission Date: 20150821
  Serious: Yes (Other)
  Sender: FDA-Public Use
  Company Number: US-ROCHE-1423638

PATIENT
  Age: 53 Year
  Sex: Male

DRUGS (1)
  1. ACTILYSE [Suspect]
     Active Substance: ALTEPLASE
     Indication: ISCHAEMIC STROKE
     Route: 042

REACTIONS (2)
  - Drug ineffective [Unknown]
  - Artery dissection [Unknown]
